FAERS Safety Report 4911108-6 (Version None)
Quarter: 2006Q1

REPORT INFORMATION
  Report Type: 
  Country: None (occurrence: None)
  Receive Date: 20060214
  Receipt Date: 20050902
  Transmission Date: 20060701
  Serious: Yes (Other)
  Sender: FDA-Public Use
  Company Number: PHEH2005US09866

PATIENT
  Sex: Male

DRUGS (3)
  1. DECADRON SRC [Concomitant]
  2. THALIDOMIDE [Concomitant]
  3. ZOMETA [Suspect]
     Indication: MULTIPLE MYELOMA
     Dosage: 4MG Q3WK
     Route: 042
     Dates: start: 20050215, end: 20050802

REACTIONS (3)
  - OEDEMA MOUTH [None]
  - OSTEONECROSIS [None]
  - PAIN IN JAW [None]
